FAERS Safety Report 8127498-X (Version None)
Quarter: 2012Q1

REPORT INFORMATION
  Report Type: 
  Country: None (occurrence: None)
  Receive Date: 20120210
  Receipt Date: 20120203
  Transmission Date: 20120608
  Serious: Yes (Hospitalization, Other)
  Sender: FDA-Public Use
  Company Number: US-BAYER-2010-009356

PATIENT
  Age: 24 Year
  Sex: Female
  Weight: 129.25 kg

DRUGS (8)
  1. XOPENEX [Concomitant]
     Indication: ASTHMA
     Dosage: UNK UNK, PRN
  2. MOTRIN [Concomitant]
  3. EFFEXOR [Concomitant]
     Dosage: 75 MG, HS
  4. NEXIUM [Concomitant]
     Dosage: UNK UNK, QD
     Route: 048
  5. LOVENOX [Concomitant]
  6. VOSOL [Concomitant]
  7. DROSPIRENONE AND ETHINYL ESTRADIOL [Suspect]
     Indication: PRODUCT USED FOR UNKNOWN INDICATION
     Dosage: UNK
     Dates: start: 20090401, end: 20090901
  8. ASMANEX TWISTHALER [Concomitant]

REACTIONS (9)
  - DEEP VEIN THROMBOSIS [None]
  - FEAR [None]
  - THROMBOSIS [None]
  - PAIN IN EXTREMITY [None]
  - OEDEMA PERIPHERAL [None]
  - MUSCLE SPASMS [None]
  - ANXIETY [None]
  - PAIN [None]
  - DEPRESSION [None]
